FAERS Safety Report 21885090 (Version 1)
Quarter: 2023Q1

REPORT INFORMATION
  Report Type: Spontaneous
  Country: GB (occurrence: GB)
  Receive Date: 20230119
  Receipt Date: 20230119
  Transmission Date: 20230418
  Serious: Yes (Other)
  Sender: FDA-Public Use
  Company Number: None

PATIENT
  Age: 65 Year
  Sex: Female
  Weight: 60 kg

DRUGS (10)
  1. RAMIPRIL [Suspect]
     Active Substance: RAMIPRIL
     Indication: Hypertension
     Dosage: 5 MILLIGRAM, QD (TOTAL 7.5MG IF BP STILL RAISED)
     Route: 065
     Dates: start: 20230104
  2. BEVESPI AEROSPHERE [Concomitant]
     Active Substance: FORMOTEROL FUMARATE\GLYCOPYRROLATE
     Dosage: 2 DOSAGE FORM, BID
     Route: 055
     Dates: start: 20220303
  3. CARBOCYSTEINE [Concomitant]
     Active Substance: CARBOCYSTEINE
     Dosage: 2 DOSAGE FORM, TID
     Route: 065
     Dates: start: 20211009
  4. CLARITHROMYCIN [Concomitant]
     Active Substance: CLARITHROMYCIN
     Dosage: 1 DOSAGE FORM, BID (EVERY 12 HOURS) (STANDBY SUPPLY)
     Route: 065
     Dates: start: 20220714
  5. DOXYCYCLINE [Concomitant]
     Active Substance: DOXYCYCLINE
     Dosage: QD (TAKE TWO NOW THEN ONE DAILY FOR 7 DAYS TO TREAT)
     Route: 065
     Dates: start: 20221219, end: 20221226
  6. LERCANIDIPINE HYDROCHLORIDE [Concomitant]
     Active Substance: LERCANIDIPINE HYDROCHLORIDE
     Dosage: 1 DOSAGE FORM, QD
     Route: 065
     Dates: start: 20220330, end: 20230104
  7. LOSARTAN [Concomitant]
     Active Substance: LOSARTAN
     Dosage: 1 DOSAGE FORM, QD
     Route: 065
     Dates: start: 20230109
  8. ALBUTEROL [Concomitant]
     Active Substance: ALBUTEROL
     Dosage: 2 DOSAGE FORM, PRN (AS NECESSARY)
     Route: 055
     Dates: start: 20221124
  9. ALBUTEROL [Concomitant]
     Active Substance: ALBUTEROL
     Dosage: 2 DOSAGE FORM, PRN (AS NECESSARY)
     Route: 055
     Dates: start: 20211009
  10. SODIUM CHLORIDE [Concomitant]
     Active Substance: SODIUM CHLORIDE
     Dosage: AS NECESSARY (USE AS DIRECTED 4-6 HOURLY)
     Route: 065
     Dates: start: 20211118

REACTIONS (1)
  - Wheezing [Recovered/Resolved]
